FAERS Safety Report 9797416 (Version 3)
Quarter: 2014Q1

REPORT INFORMATION
  Report Type: Report from Study
  Country: US (occurrence: US)
  Receive Date: 20140106
  Receipt Date: 20140212
  Transmission Date: 20141002
  Serious: Yes (Other)
  Sender: FDA-Public Use
  Company Number: PHEH2013US026365

PATIENT
  Age: 58 Year
  Sex: Female

DRUGS (5)
  1. TEGRETOL [Suspect]
     Indication: CONVULSION
     Dosage: 2 DF, BID
     Dates: start: 2004, end: 2004
  2. TEGRETOL [Suspect]
     Dosage: UNK UKN, UNK
  3. COPAXONE [Suspect]
     Indication: MULTIPLE SCLEROSIS
     Dosage: UNK UKN, UNK
     Dates: start: 20091229
  4. KEPPRA [Concomitant]
     Dosage: UNK UKN, UNK
  5. LAMICTAL [Concomitant]
     Dosage: UNK UKN, UNK

REACTIONS (4)
  - Multiple sclerosis [Unknown]
  - Petit mal epilepsy [Unknown]
  - Convulsion [Unknown]
  - White blood cell count decreased [Recovered/Resolved]
